FAERS Safety Report 25160249 (Version 1)
Quarter: 2025Q2

REPORT INFORMATION
  Report Type: Report from Study
  Country: LK (occurrence: LK)
  Receive Date: 20250404
  Receipt Date: 20250404
  Transmission Date: 20250717
  Serious: Yes (Death)
  Sender: RANBAXY
  Company Number: LK-SUN PHARMACEUTICAL INDUSTRIES LTD-2025R1-502233

PATIENT
  Age: 35 Year
  Sex: Female

DRUGS (5)
  1. DOBUTAMINE [Suspect]
     Active Substance: DOBUTAMINE HYDROCHLORIDE
     Indication: Dengue fever
     Route: 065
  2. NOREPINEPHRINE BITARTRATE [Suspect]
     Active Substance: NOREPINEPHRINE BITARTRATE
     Indication: Dengue fever
     Route: 065
  3. ACETYLCYSTEINE [Suspect]
     Active Substance: ACETYLCYSTEINE
     Indication: Acute hepatic failure
     Route: 065
  4. SODIUM BICARBONATE [Suspect]
     Active Substance: SODIUM BICARBONATE
     Indication: Dengue fever
     Route: 042
  5. VASOPRESSIN [Concomitant]
     Active Substance: VASOPRESSIN
     Indication: Dengue fever
     Route: 065

REACTIONS (1)
  - Condition aggravated [Fatal]
